FAERS Safety Report 6268001-9 (Version None)
Quarter: 2009Q3

REPORT INFORMATION
  Report Type: 
  Country: None (occurrence: None)
  Receive Date: 20090713
  Receipt Date: 20090702
  Transmission Date: 20100115
  Serious: Yes (Hospitalization)
  Sender: FDA-Public Use
  Company Number: 2009-01688

PATIENT
  Age: 56 Year
  Sex: Male

DRUGS (20)
  1. VELCADE [Suspect]
     Indication: MULTIPLE MYELOMA
     Dosage: 1.3 MG/M2, UNK, UNK
     Dates: start: 20071101
  2. MELPHALAN(MELPHALAN) VIAL [Suspect]
     Indication: MULTIPLE MYELOMA
     Dosage: 368 MG, UNK, INTRAVENOUS
     Route: 042
     Dates: start: 20071103, end: 20071103
  3. MULTIVITAMIN AND MINERAL SUPPLEMENT (VITAMINS NOS, MINERALS NOS) [Concomitant]
  4. PEPCID [Concomitant]
  5. CIPROFLOXACIN [Concomitant]
  6. ACYCLOVIR (ACIVLOVIR) [Concomitant]
  7. FOLIC ACID [Concomitant]
  8. FLUCONAZOLE [Concomitant]
  9. FUROSEMIDE [Concomitant]
  10. COMPAZINE [Concomitant]
  11. ATIVAN [Concomitant]
  12. AMBIEN [Concomitant]
  13. DEMEROL [Concomitant]
  14. TYLENOL [Concomitant]
  15. OXYCODONE HCL [Concomitant]
  16. BACLOFEN [Concomitant]
  17. MAALOX (MAGNESIUM HYDROXIDE, ALUMINIUM HYDROXIDE GEL) [Concomitant]
  18. BENADRYL (SODIUM CITRATE, AMMONIUM CHLORIDE, MENTHOL, DIPHENHYDRAMINE [Concomitant]
  19. ONDANSETRON HCL [Concomitant]
  20. DEXAMETHASONE [Concomitant]

REACTIONS (8)
  - DECREASED APPETITE [None]
  - DIARRHOEA [None]
  - DYSPHAGIA [None]
  - ENTEROCOCCAL INFECTION [None]
  - HYPOTENSION [None]
  - MUCOSAL INFLAMMATION [None]
  - PYREXIA [None]
  - TUMOUR LYSIS SYNDROME [None]
